FAERS Safety Report 4637294-3 (Version None)
Quarter: 2005Q2

REPORT INFORMATION
  Report Type: 
  Country: None (occurrence: None)
  Receive Date: 20050328
  Receipt Date: 20041201
  Transmission Date: 20051028
  Serious: No
  Sender: FDA-Public Use
  Company Number: USA041284939

PATIENT
  Age: 31 Year
  Sex: Female

DRUGS (2)
  1. STRATTERA [Suspect]
     Dosage: 80 MG DAY
     Dates: start: 20041101
  2. ZOLOFT [Concomitant]

REACTIONS (2)
  - ANXIETY [None]
  - DIZZINESS [None]
